FAERS Safety Report 5787107-1 (Version None)
Quarter: 2008Q2

REPORT INFORMATION
  Report Type: 
  Country: None (occurrence: None)
  Receive Date: 20080625
  Receipt Date: 20080616
  Transmission Date: 20081010
  Serious: Yes (Other)
  Sender: FDA-Public Use
  Company Number: TR-BAYER-200819457GPV

PATIENT
  Age: 27 Year
  Sex: Female

DRUGS (3)
  1. BETAFERON [Suspect]
     Indication: MULTIPLE SCLEROSIS
     Route: 058
     Dates: start: 20060501, end: 20080201
  2. DIDERAL [Concomitant]
     Indication: PALPITATIONS
     Dosage: TOTAL DAILY DOSE: 1 DF
     Route: 065
     Dates: start: 20060501, end: 20080201
  3. ESCITALOPRAM [Concomitant]
     Indication: ANXIETY
     Dosage: AS USED: 1 DF
     Route: 065
     Dates: start: 20060501

REACTIONS (2)
  - HYPERTHYROIDISM [None]
  - THYROIDITIS [None]
